FAERS Safety Report 7124861-0 (Version None)
Quarter: 2010Q4

REPORT INFORMATION
  Report Type: 
  Country: None (occurrence: None)
  Receive Date: 20101129
  Receipt Date: 20101117
  Transmission Date: 20110411
  Serious: Yes (Hospitalization)
  Sender: FDA-Public Use
  Company Number: US-ELI_LILLY_AND_COMPANY-US201010001523

PATIENT
  Sex: Male
  Weight: 103.86 kg

DRUGS (12)
  1. PEMETREXED [Suspect]
     Indication: NON-SMALL CELL LUNG CANCER
     Dosage: 500 MG/M2, EVERY 21 DAYS
     Route: 042
     Dates: start: 20100521, end: 20101008
  2. CARBOPLATIN [Suspect]
     Indication: NON-SMALL CELL LUNG CANCER
     Dosage: 6 AUC, EVERY 21 DAYS
     Route: 042
     Dates: start: 20100521, end: 20100730
  3. FOLIC ACID [Concomitant]
     Indication: PROPHYLAXIS
  4. VITAMIN B-12 [Concomitant]
     Indication: PROPHYLAXIS
  5. ALBUTEROL [Concomitant]
     Indication: CHRONIC OBSTRUCTIVE PULMONARY DISEASE
  6. SYMBICORT [Concomitant]
     Indication: CHRONIC OBSTRUCTIVE PULMONARY DISEASE
  7. GLYBURIDE [Concomitant]
     Indication: DIABETES MELLITUS
  8. JANUVIA [Concomitant]
     Indication: DIABETES MELLITUS
  9. LASIX [Concomitant]
     Indication: FLUID RETENTION
  10. ZOCOR [Concomitant]
     Indication: HYPERCHOLESTEROLAEMIA
  11. TERAZOSIN HCL [Concomitant]
  12. PREDNISONE [Concomitant]
     Indication: DYSPNOEA

REACTIONS (1)
  - PULMONARY EMBOLISM [None]
